FAERS Safety Report 9056574 (Version 4)
Quarter: 2013Q3

REPORT INFORMATION
  Report Type: Report from Study
  Country: CH (occurrence: CH)
  Receive Date: 20130204
  Receipt Date: 20130813
  Transmission Date: 20140515
  Serious: Yes (Death, Hospitalization, Other)
  Sender: FDA-Public Use
  Company Number: CH-ROCHE-1186729

PATIENT
  Age: 77 Year
  Sex: Male

DRUGS (4)
  1. BEVACIZUMAB [Suspect]
     Indication: LUNG NEOPLASM MALIGNANT
     Dosage: LAST DOSE PRIOR TO SAE- 09/JAN/2013
     Route: 042
     Dates: start: 20120703
  2. ERLOTINIB [Suspect]
     Indication: LUNG NEOPLASM MALIGNANT
     Dosage: DATE OF LAST DOSE BEFORE SAE:29/JAN/2013.
     Route: 048
     Dates: start: 20120703
  3. ERLOTINIB [Suspect]
     Route: 048
     Dates: start: 20121219
  4. ERLOTINIB [Suspect]
     Dosage: LAST DOSE PRIOR TO SAE- 29/JAN/2013
     Route: 048
     Dates: start: 20130109

REACTIONS (2)
  - Febrile neutropenia [Recovered/Resolved]
  - Acute myeloid leukaemia [Fatal]
